FAERS Safety Report 6112435-X (Version None)
Quarter: 2009Q1

REPORT INFORMATION
  Report Type: 
  Country: None (occurrence: None)
  Receive Date: 20090312
  Receipt Date: 20090226
  Transmission Date: 20090719
  Serious: Yes (Hospitalization, Disabling)
  Sender: FDA-Public Use
  Company Number: PHHY2009IE05091

PATIENT
  Sex: Male

DRUGS (4)
  1. CLOZARIL [Suspect]
     Indication: SCHIZOPHRENIA
     Dosage: 350 MG DAILY
     Dates: start: 20080929
  2. CLOZARIL [Suspect]
     Dosage: UNK
  3. AMISULPRIDE [Concomitant]
     Dosage: 200 MG/DAY
     Route: 048
  4. HAPPY PILLS [Concomitant]

REACTIONS (4)
  - CONVULSION [None]
  - FALL [None]
  - LOSS OF CONSCIOUSNESS [None]
  - TONGUE INJURY [None]
